FAERS Safety Report 4408241-4 (Version None)
Quarter: 2004Q3

REPORT INFORMATION
  Report Type: 
  Country: None (occurrence: None)
  Receive Date: 20040726
  Receipt Date: 20040726
  Transmission Date: 20050211
  Serious: Yes (Other)
  Sender: FDA-Public Use
  Company Number: None

PATIENT
  Age: 54 Year
  Sex: Female
  Weight: 62.5964 kg

DRUGS (1)
  1. VANIQA [Suspect]
     Indication: HAIR DISORDER
     Dosage: SMALL AMOUNT  BID  TOPICAL
     Route: 061
     Dates: start: 20040303, end: 20040722

REACTIONS (2)
  - HYPOTRICHOSIS [None]
  - RASH [None]
